FAERS Safety Report 18164763 (Version 2)
Quarter: 2020Q4

REPORT INFORMATION
  Report Type: Report from Study
  Country: CL (occurrence: CL)
  Receive Date: 20200818
  Receipt Date: 20201028
  Transmission Date: 20210113
  Serious: Yes (Hospitalization, Other)
  Sender: FDA-Public Use
  Company Number: CL-JNJFOC-20200624334

PATIENT
  Age: 6 Decade
  Sex: Female

DRUGS (2)
  1. SIMPONI [Suspect]
     Active Substance: GOLIMUMAB
     Indication: PSORIATIC ARTHROPATHY
     Dosage: STARTED 6 YEARS AGO
     Route: 042
  2. SIMPONI [Suspect]
     Active Substance: GOLIMUMAB
     Dosage: STARTED IN 2015 APPROXIMATELY
     Route: 058
     Dates: start: 2015

REACTIONS (9)
  - Arthritis [Not Recovered/Not Resolved]
  - Pain [Unknown]
  - Hospitalisation [Unknown]
  - Lumbar spinal stenosis [Unknown]
  - Resorption bone increased [Unknown]
  - Blood glucose fluctuation [Recovering/Resolving]
  - Hypertension [Not Recovered/Not Resolved]
  - Drug ineffective [Unknown]
  - Bronchitis [Unknown]

NARRATIVE: CASE EVENT DATE: 2015
